FAERS Safety Report 5839343-3 (Version None)
Quarter: 2008Q3

REPORT INFORMATION
  Report Type: 
  Country: None (occurrence: None)
  Receive Date: 20080808
  Receipt Date: 20080804
  Transmission Date: 20090109
  Serious: Yes (Other)
  Sender: FDA-Public Use
  Company Number: US-PFIZER INC-2008065301

PATIENT
  Sex: Female

DRUGS (6)
  1. GEODON [Suspect]
  2. CYMBALTA [Suspect]
  3. AMBIEN [Concomitant]
  4. KLONOPIN [Concomitant]
  5. PERIACTIN [Concomitant]
  6. PRAZOSIN HCL [Concomitant]

REACTIONS (3)
  - BODY TEMPERATURE INCREASED [None]
  - DROOLING [None]
  - HYPOAESTHESIA FACIAL [None]
